FAERS Safety Report 8048626-0 (Version None)
Quarter: 2011Q4

REPORT INFORMATION
  Report Type: 
  Country: None (occurrence: None)
  Receive Date: 20111209
  Receipt Date: 20111014
  Transmission Date: 20120403
  Serious: No
  Sender: FDA-Public Use
  Company Number: 2011SP048864

PATIENT
  Age: 64 Year
  Sex: Male

DRUGS (9)
  1. VICTRELIS [Suspect]
     Indication: HEPATITIS C
     Dosage: 800 MG;TID;PO
     Route: 048
     Dates: start: 20110809
  2. DIOVAN [Concomitant]
  3. FLOMAX [Concomitant]
  4. CRESTOR [Concomitant]
  5. ASPIRIN [Concomitant]
  6. FINASTERIDE [Concomitant]
  7. VERAPAMIL [Concomitant]
  8. INTERFERON [Suspect]
     Indication: PRODUCT USED FOR UNKNOWN INDICATION
  9. RIBAVIRIN [Suspect]
     Indication: PRODUCT USED FOR UNKNOWN INDICATION

REACTIONS (4)
  - ASTHENIA [None]
  - ANAEMIA [None]
  - MOOD ALTERED [None]
  - DECREASED APPETITE [None]
